FAERS Safety Report 9295624 (Version 1)
Quarter: 2013Q1

REPORT INFORMATION
  Report Type: Spontaneous
  Country: CA (occurrence: None)
  Receive Date: 20130103
  Receipt Date: 20130103
  Transmission Date: 20140127
  Serious: Yes (Other)
  Sender: FDA-Public Use
  Company Number: DSA_55338_2012

PATIENT
  Sex: Male

DRUGS (7)
  1. XENAZINE [Suspect]
     Indication: HUNTINGTON^S DISEASE
     Route: 048
     Dates: start: 20111230, end: 20120208
  2. DIVALPROEX [Concomitant]
  3. CITALOPRAM [Concomitant]
  4. HALOPERIDOL [Concomitant]
  5. VESICARE [Concomitant]
  6. FISH OIL [Concomitant]
  7. VITAMIN D NOS [Concomitant]

REACTIONS (1)
  - Depression suicidal [None]
